FAERS Safety Report 7621314-8 (Version None)
Quarter: 2011Q3

REPORT INFORMATION
  Report Type: 
  Country: None (occurrence: None)
  Receive Date: 20110719
  Receipt Date: 20110712
  Transmission Date: 20111222
  Serious: Yes (Hospitalization)
  Sender: FDA-Public Use
  Company Number: US-SANOFI-AVENTIS-2011SA045195

PATIENT
  Age: 57 Year
  Sex: Male

DRUGS (6)
  1. ATORVASTATIN [Suspect]
     Route: 048
     Dates: start: 20091001
  2. COREG [Suspect]
     Route: 048
     Dates: start: 20091001
  3. NEURONTIN [Suspect]
     Route: 048
     Dates: start: 20080101
  4. PLAVIX [Suspect]
     Route: 048
     Dates: start: 20091001
  5. GLUCOVANCE [Concomitant]
     Dosage: 5/500MG BID
  6. ALBUTEROL SULFATE AUTOHALER [Concomitant]
     Indication: BRONCHITIS
     Dosage: 2 PUFFS AS NEEDED

REACTIONS (2)
  - CARDIAC DISORDER [None]
  - ILL-DEFINED DISORDER [None]
